FAERS Safety Report 6058386-0 (Version None)
Quarter: 2009Q1

REPORT INFORMATION
  Report Type: 
  Country: None (occurrence: None)
  Receive Date: 20090127
  Receipt Date: 20090120
  Transmission Date: 20090719
  Serious: Yes (Death)
  Sender: FDA-Public Use
  Company Number: 2009SP001350

PATIENT
  Age: 78 Year
  Sex: Male

DRUGS (4)
  1. POSACONAZOLE [Suspect]
     Indication: ZYGOMYCOSIS
  2. AMPHOTERICIN B [Suspect]
     Indication: ZYGOMYCOSIS
     Dosage: 5 MG/KG; QD;
  3. PREDNISOLONE [Concomitant]
  4. VORICONAZOLE [Concomitant]

REACTIONS (10)
  - CEREBRAL INFARCTION [None]
  - COMMUNICATION DISORDER [None]
  - DRUG INEFFECTIVE [None]
  - DRUG RESISTANCE [None]
  - GENERAL PHYSICAL HEALTH DETERIORATION [None]
  - HYPOKALAEMIA [None]
  - HYPONATRAEMIA [None]
  - HYPOPROTEINAEMIA [None]
  - PAPILLOEDEMA [None]
  - SINUSITIS [None]
